FAERS Safety Report 25994090 (Version 1)
Quarter: 2025Q4

REPORT INFORMATION
  Report Type: Spontaneous
  Country: GB (occurrence: GB)
  Receive Date: 20251104
  Receipt Date: 20251104
  Transmission Date: 20260118
  Serious: Yes (Disabling, Other)
  Sender: LEO PHARM
  Company Number: None

PATIENT
  Sex: Female

DRUGS (1)
  1. ADBRY [Suspect]
     Active Substance: TRALOKINUMAB-LDRM
     Indication: Dermatitis atopic

REACTIONS (4)
  - Arthralgia [Recovered/Resolved]
  - Tenosynovitis [Recovered/Resolved]
  - Arthritis [Recovered/Resolved]
  - Enthesopathy [Recovered/Resolved]
